FAERS Safety Report 5666915-1 (Version None)
Quarter: 2008Q1

REPORT INFORMATION
  Report Type: 
  Country: None (occurrence: None)
  Receive Date: 20080315
  Receipt Date: 20080102
  Transmission Date: 20080703
  Serious: No
  Sender: FDA-Public Use
  Company Number: US-ABBOTT-08P-163-0432523-00

PATIENT
  Sex: Female
  Weight: 79.45 kg

DRUGS (1)
  1. HUMIRA [Suspect]
     Indication: PSORIATIC ARTHROPATHY
     Route: 058
     Dates: start: 20071215, end: 20080101

REACTIONS (5)
  - ASTHENIA [None]
  - DIARRHOEA [None]
  - INFECTIOUS MONONUCLEOSIS [None]
  - MYALGIA [None]
  - PYREXIA [None]
